FAERS Safety Report 4688651-0 (Version None)
Quarter: 2005Q2

REPORT INFORMATION
  Report Type: 
  Country: None (occurrence: None)
  Receive Date: 20050613
  Receipt Date: 20050606
  Transmission Date: 20051028
  Serious: Yes (Death)
  Sender: FDA-Public Use
  Company Number: US-JNJFOC-20050601852

PATIENT
  Age: 41 Year
  Sex: Male

DRUGS (3)
  1. DURAGESIC-100 [Suspect]
     Route: 062
     Dates: start: 20020101, end: 20020101
  2. HYDROCODONE BITARTRATE [Concomitant]
     Indication: PAIN
     Route: 049
  3. NEURONTIN [Concomitant]
     Indication: PAIN
     Route: 049

REACTIONS (1)
  - DEATH [None]
